FAERS Safety Report 4885105-3 (Version None)
Quarter: 2006Q1

REPORT INFORMATION
  Report Type: 
  Country: None (occurrence: None)
  Receive Date: 20060117
  Receipt Date: 20060104
  Transmission Date: 20060701
  Serious: Yes (Other)
  Sender: FDA-Public Use
  Company Number: 2006005710

PATIENT
  Age: 53 Year
  Sex: Male

DRUGS (2)
  1. HALCION [Suspect]
     Indication: INSOMNIA
     Dosage: 0.25 MG (0.25 MG, 1 IN 1D)
  2. CAVERJECT [Suspect]
     Indication: NERVE INJURY
     Dosage: (20 MCG)
     Dates: start: 20030101

REACTIONS (18)
  - ACCIDENT AT WORK [None]
  - ANXIETY [None]
  - BLOOD TESTOSTERONE DECREASED [None]
  - CLAUSTROPHOBIA [None]
  - DEPRESSION [None]
  - DRUG INEFFECTIVE [None]
  - DYSURIA [None]
  - GASTRIC PH DECREASED [None]
  - HAEMORRHAGE [None]
  - HEADACHE [None]
  - HYPERTENSION [None]
  - INSOMNIA [None]
  - LOSS OF CONSCIOUSNESS [None]
  - NERVE INJURY [None]
  - PAIN [None]
  - PARKINSON'S DISEASE [None]
  - SPINAL FRACTURE [None]
  - WEIGHT INCREASED [None]
